FAERS Safety Report 4680287-0 (Version None)
Quarter: 2005Q2

REPORT INFORMATION
  Report Type: 
  Country: None (occurrence: None)
  Receive Date: 20050601
  Receipt Date: 20050518
  Transmission Date: 20051028
  Serious: Yes (Hospitalization, Other)
  Sender: FDA-Public Use
  Company Number: FABR-11088

PATIENT
  Age: 45 Year
  Sex: Male
  Weight: 96 kg

DRUGS (9)
  1. FABRAZYME [Suspect]
     Indication: FABRY'S DISEASE
     Dosage: 2 MG/KG Q2WKS IV
     Route: 042
     Dates: start: 20040211, end: 20050504
  2. PLACEBO [Suspect]
     Indication: FABRY'S DISEASE
     Dosage: 1 MG/KG Q2WKS IV
     Route: 042
     Dates: start: 20010620, end: 20040128
  3. MONO MACK [Concomitant]
  4. TRENTAL [Concomitant]
  5. BERODUAL [Concomitant]
  6. MAGNESIUM [Concomitant]
  7. HYDROCORTISONE [Concomitant]
  8. DITHIADEN [Concomitant]
  9. PREDNISONE TAB [Concomitant]

REACTIONS (12)
  - ANGIONEUROTIC OEDEMA [None]
  - BLOOD IMMUNOGLOBULIN E INCREASED [None]
  - CHEST PAIN [None]
  - COMPLEMENT FACTOR ABNORMAL [None]
  - HYPERSENSITIVITY [None]
  - HYPERTROPHIC CARDIOMYOPATHY [None]
  - INFUSION RELATED REACTION [None]
  - PRURITUS [None]
  - RASH [None]
  - SKIN TEST POSITIVE [None]
  - TRYPTASE INCREASED [None]
  - URTICARIA [None]
